FAERS Safety Report 20009940 (Version 2)
Quarter: 2021Q4

REPORT INFORMATION
  Report Type: Spontaneous
  Country: US (occurrence: US)
  Receive Date: 20211028
  Receipt Date: 20211213
  Transmission Date: 20220304
  Serious: Yes (Other)
  Sender: FDA-Public Use
  Company Number: US-PFIZER INC-202101381427

PATIENT
  Age: 74 Year
  Sex: Male
  Weight: 158.76 kg

DRUGS (1)
  1. DEPO-TESTOSTERONE [Suspect]
     Active Substance: TESTOSTERONE CYPIONATE
     Indication: Androgen deficiency
     Dosage: 1 ML (1ML 200MG/ML)

REACTIONS (9)
  - Cutaneous lupus erythematosus [Unknown]
  - Blood testosterone increased [Unknown]
  - Cyst [Unknown]
  - Fatigue [Unknown]
  - Cardiac disorder [Unknown]
  - Intervertebral disc degeneration [Unknown]
  - Arthritis [Unknown]
  - Tendonitis [Unknown]
  - Bursitis [Unknown]
